FAERS Safety Report 10384399 (Version 1)
Quarter: 2014Q1

REPORT INFORMATION
  Report Type: Spontaneous
  Country: US (occurrence: None)
  Receive Date: 20140306
  Receipt Date: 20140306
  Transmission Date: 20141002
  Serious: Yes (Other)
  Sender: FDA-Public Use
  Company Number: 163-21880-13053488

PATIENT
  Age: 85 Year
  Sex: Male

DRUGS (20)
  1. REVLIMIB (LENALIDOMIDE) (CAPSULES) [Suspect]
     Indication: MYELODYSPLASTIC SYNDROME
     Dosage: 2.5MG, 21 IN 28 D, PO
     Route: 048
     Dates: start: 20130320
  2. ACYCLOVIR (ACICLOVIR) (TABLETS) [Concomitant]
  3. ALDACTONE (SPIRONOLACTONE) [Concomitant]
  4. ARANESP (DARBEPOETIN ALFA) [Concomitant]
  5. ATENOLOL (TABLETS) [Concomitant]
  6. CENTRUM SILVER [Concomitant]
  7. FLOMAX (TAMSULOSIN HYDROCHLORIDE) (CAPSULES) [Concomitant]
  8. IRON [Concomitant]
  9. LASIX (FUROSEMIDE) [Concomitant]
  10. ACETAMINOPHEN/CODEINE #3 (GALENIC/PARACETAMOL/CODEINE) [Concomitant]
  11. LEVAQUIN (LEVOFLOXACIN) [Concomitant]
  12. POTASSIUM [Concomitant]
  13. SINEMET (TABLETS) [Concomitant]
  14. SPIRONOLACTONE (TABLETS) [Concomitant]
  15. MULTIVITAMINS (TABLETS) [Concomitant]
  16. ONDANSETRON HCL (TABLETS) [Concomitant]
  17. POLY-IRON (POLYSACCHARIDE HYDROCHLORIDE) (TABLETS) [Concomitant]
  18. PROCHLORPERAZINE MALEATE (TABLETS) [Concomitant]
  19. PROSCAR (FINASTERIDE) (TABLETS) [Concomitant]
  20. VITAMIN B12 (CYANOCOBALAMIN) [Concomitant]

REACTIONS (7)
  - Cardiac failure congestive [None]
  - Pancytopenia [None]
  - Crepitations [None]
  - Neutropenia [None]
  - Oedema peripheral [None]
  - Weight increased [None]
  - Asthenia [None]
